FAERS Safety Report 18305114 (Version 1)
Quarter: 2020Q3

REPORT INFORMATION
  Report Type: Spontaneous
  Country: NL (occurrence: GB)
  Receive Date: 20200923
  Receipt Date: 20200923
  Transmission Date: 20201103
  Serious: Yes (Other)
  Sender: FDA-Public Use
  Company Number: GB-FRESENIUS KABI-FK202009583

PATIENT
  Sex: Female

DRUGS (3)
  1. LEUCOVORIN CALCIUM (MANUFACTURER UNKNOWN) [Suspect]
     Active Substance: LEUCOVORIN CALCIUM
     Indication: COLORECTAL CANCER
     Dosage: 10 CYCLES THEN 2 CYCLES WITH 5FU ALONE
     Route: 065
     Dates: start: 201612, end: 201706
  2. OXALIPLATIN (MANUFACTURER UNKNOWN) [Suspect]
     Active Substance: OXALIPLATIN
     Indication: COLORECTAL CANCER
     Dosage: 10 CYCLES THEN 2 CYCLES WITH 5FU ALONE
     Route: 065
     Dates: start: 201612, end: 201706
  3. FLUOROURACIL. [Suspect]
     Active Substance: FLUOROURACIL
     Indication: COLORECTAL CANCER
     Dosage: 10 CYCLES THEN 2 CYCLES WITH 5FU ALONE
     Route: 065
     Dates: start: 201612, end: 201706

REACTIONS (1)
  - Neutropenia [Unknown]
